FAERS Safety Report 12819126 (Version 1)
Quarter: 2016Q4

REPORT INFORMATION
  Report Type: Spontaneous
  Country: FR (occurrence: FR)
  Receive Date: 20161006
  Receipt Date: 20161006
  Transmission Date: 20170207
  Serious: Yes (Other)
  Sender: FDA-Public Use
  Company Number: FR-PFIZER INC-2016457460

PATIENT
  Age: 69 Year
  Sex: Male

DRUGS (1)
  1. LYRICA [Suspect]
     Active Substance: PREGABALIN
     Indication: BACK PAIN
     Dosage: UNK
     Route: 048
     Dates: start: 20151008

REACTIONS (4)
  - Disturbance in attention [Unknown]
  - Suicidal ideation [Unknown]
  - Restlessness [Unknown]
  - Decreased appetite [Unknown]

NARRATIVE: CASE EVENT DATE: 201510
